FAERS Safety Report 25924886 (Version 1)
Quarter: 2025Q4

REPORT INFORMATION
  Report Type: Spontaneous
  Country: US (occurrence: None)
  Receive Date: 20251013
  Receipt Date: 20251013
  Transmission Date: 20260118
  Serious: Yes (unspecified)
  Sender: FDA-CTU
  Company Number: None

PATIENT
  Age: 46 Year
  Sex: Female
  Weight: 83.25 kg

DRUGS (1)
  1. ISOVUE 370 [Suspect]
     Active Substance: IOPAMIDOL
     Dosage: 100 ML ONE TIME EVENT  INTRAVENOUS?
     Route: 042

REACTIONS (3)
  - Contrast media reaction [None]
  - Urticaria [None]
  - Skin burning sensation [None]

NARRATIVE: CASE EVENT DATE: 20251006
